FAERS Safety Report 10025593 (Version 1)
Quarter: 2014Q1

REPORT INFORMATION
  Report Type: Spontaneous
  Country: US (occurrence: US)
  Receive Date: 20140320
  Receipt Date: 20140320
  Transmission Date: 20141002
  Serious: No
  Sender: FDA-Public Use
  Company Number: US-TEVA-470323USA

PATIENT
  Age: 41 Year
  Sex: Female
  Weight: 44.49 kg

DRUGS (2)
  1. PLAN B ONE-STEP [Suspect]
     Indication: MENSTRUAL CYCLE MANAGEMENT
     Dosage: 1.5 MILLIGRAM DAILY;
     Route: 048
     Dates: start: 20140305, end: 20140305
  2. WOMEN^S ONE-A-DAY [Concomitant]
     Indication: VITAMIN SUPPLEMENTATION

REACTIONS (6)
  - Breast discomfort [Not Recovered/Not Resolved]
  - Abdominal distension [Not Recovered/Not Resolved]
  - Adnexa uteri pain [Not Recovered/Not Resolved]
  - Menstruation irregular [Not Recovered/Not Resolved]
  - Fatigue [Not Recovered/Not Resolved]
  - Off label use [Unknown]
